FAERS Safety Report 4349576-3 (Version None)
Quarter: 2004Q1

REPORT INFORMATION
  Report Type: 
  Country: None (occurrence: None)
  Receive Date: 20040329
  Receipt Date: 20031121
  Transmission Date: 20041129
  Serious: No
  Sender: FDA-Public Use
  Company Number: USA031153221

PATIENT
  Sex: Male

DRUGS (2)
  1. STRATTERA [Suspect]
     Indication: ATTENTION DEFICIT/HYPERACTIVITY DISORDER
     Dosage: 85 MG
     Dates: start: 20030101, end: 20030101
  2. NORVASC [Concomitant]

REACTIONS (2)
  - FATIGUE [None]
  - NOCTURIA [None]
